FAERS Safety Report 22029688 (Version 1)
Quarter: 2023Q1

REPORT INFORMATION
  Report Type: Report from Study
  Country: TW (occurrence: TW)
  Receive Date: 20230223
  Receipt Date: 20230223
  Transmission Date: 20230417
  Serious: Yes (Other)
  Sender: FDA-Public Use
  Company Number: TW-TAKEDA-2023TUS016504

PATIENT
  Age: 33 Year
  Sex: Male

DRUGS (1)
  1. VEDOLIZUMAB [Suspect]
     Active Substance: VEDOLIZUMAB
     Indication: Crohn^s disease
     Dosage: 300 MILLIGRAM, Q4WEEKS
     Route: 042
     Dates: start: 20220212, end: 20230218

REACTIONS (3)
  - Ankylosing spondylitis [Recovered/Resolved]
  - COVID-19 [Unknown]
  - Hip deformity [Recovered/Resolved]

NARRATIVE: CASE EVENT DATE: 20230207
